FAERS Safety Report 8376205-4 (Version None)
Quarter: 2012Q2

REPORT INFORMATION
  Report Type: 
  Country: None (occurrence: None)
  Receive Date: 20120522
  Receipt Date: 20120517
  Transmission Date: 20120825
  Serious: Yes (Hospitalization)
  Sender: FDA-Public Use
  Company Number: US-BAYER-2011-122140

PATIENT
  Age: 31 Year
  Sex: Female
  Weight: 97.506 kg

DRUGS (12)
  1. YAZ [Suspect]
     Indication: PREMENSTRUAL SYNDROME
     Dosage: UNK
     Route: 048
     Dates: start: 20080529, end: 20091015
  2. SIMVASTATIN [Concomitant]
     Indication: BLOOD CHOLESTEROL INCREASED
     Dosage: 75 MG, QD
     Route: 048
     Dates: start: 20080101
  3. TRICOR [Concomitant]
     Indication: BLOOD CHOLESTEROL INCREASED
     Dosage: 145 MG, QD
     Dates: start: 20080101
  4. SPIRONOLACTONE [Concomitant]
     Indication: ACNE
     Dosage: UNK
     Dates: start: 20040101, end: 20080101
  5. ZOLOFT [Concomitant]
     Indication: DEPRESSION
     Dosage: 100 MG QD
     Route: 048
     Dates: start: 20000101, end: 20090101
  6. CHANTIX [Concomitant]
     Dosage: UNK
  7. NSAID'S [Concomitant]
     Dosage: UNK
  8. HYDROCHLOROTHIAZIDE [Concomitant]
     Indication: HYPERTENSION
     Dosage: 50 MG, UNK
     Route: 048
     Dates: start: 20080401
  9. PROVENTIL [Concomitant]
     Dosage: UNK
  10. SERTRALINE HYDROCHLORIDE [Concomitant]
     Indication: DEPRESSION
     Dosage: UNK
     Dates: start: 20080801, end: 20090101
  11. FLUTICASONE FUROATE [Concomitant]
     Dosage: UNK
  12. CYMBALTA [Concomitant]
     Indication: DEPRESSION
     Dosage: UNK
     Dates: start: 20080101, end: 20080501

REACTIONS (7)
  - EMOTIONAL DISTRESS [None]
  - ANXIETY [None]
  - INJURY [None]
  - PAIN [None]
  - GENERAL PHYSICAL HEALTH DETERIORATION [None]
  - CHEST PAIN [None]
  - PULMONARY EMBOLISM [None]
